FAERS Safety Report 7802979-4 (Version None)
Quarter: 2011Q4

REPORT INFORMATION
  Report Type: 
  Country: None (occurrence: None)
  Receive Date: 20111007
  Receipt Date: 20111004
  Transmission Date: 20120403
  Serious: Yes (Other)
  Sender: FDA-Public Use
  Company Number: IT-ABBOTT-11P-083-0857405-00

PATIENT
  Sex: Female

DRUGS (2)
  1. DIFMETRE [Suspect]
     Indication: HEADACHE
     Route: 054
     Dates: start: 20110601, end: 20110921
  2. IBUPROFEN [Concomitant]
     Indication: PRODUCT USED FOR UNKNOWN INDICATION
     Route: 048

REACTIONS (5)
  - COLD SWEAT [None]
  - CONFUSIONAL STATE [None]
  - DRUG INEFFECTIVE [None]
  - NAUSEA [None]
  - TREMOR [None]
